FAERS Safety Report 7825794 (Version 5)
Quarter: 2014Q2

REPORT INFORMATION
  Report Type: Spontaneous
  Country: US (occurrence: US)
  Receive Date: 20110224
  Receipt Date: 20140404
  Transmission Date: 20141212
  Serious: Yes (Hospitalization, Other)
  Sender: FDA-Public Use
  Company Number: US-BAYER-2011-017074

PATIENT
  Age: 23 Year
  Sex: Female
  Weight: 97.51 kg

DRUGS (8)
  1. YASMIN [Suspect]
     Indication: PRODUCT USED FOR UNKNOWN INDICATION
     Dosage: UNK
     Route: 048
     Dates: start: 20040221
  2. ADVIL [Concomitant]
     Dosage: UNK UNK, PRN
  3. HYDROCODONE W/ACETAMINOPHEN [Concomitant]
  4. ALBUTEROL INHALER [Concomitant]
  5. NAPROXEN [Concomitant]
     Dosage: 550 MG, UNK
  6. BACTRIM DS [Concomitant]
  7. COLACE [Concomitant]
  8. MOTRIN [Concomitant]

REACTIONS (3)
  - Gallbladder injury [None]
  - Cholecystitis chronic [None]
  - Pain [None]
